FAERS Safety Report 18566050 (Version 3)
Quarter: 2021Q2

REPORT INFORMATION
  Report Type: Report from Study
  Country: US (occurrence: US)
  Receive Date: 20201201
  Receipt Date: 20210422
  Transmission Date: 20210717
  Serious: No
  Sender: FDA-Public Use
  Company Number: NVSC2020US320007

PATIENT
  Sex: Male

DRUGS (1)
  1. COSENTYX [Suspect]
     Active Substance: SECUKINUMAB
     Indication: PSORIATIC ARTHROPATHY
     Dosage: 300 MG, EVERY 4 WEEKS
     Route: 058

REACTIONS (2)
  - Cutaneous symptom [Not Recovered/Not Resolved]
  - Drug ineffective [Not Recovered/Not Resolved]
